FAERS Safety Report 5569945-3 (Version None)
Quarter: 2007Q4

REPORT INFORMATION
  Report Type: 
  Country: None (occurrence: None)
  Receive Date: 20071217
  Receipt Date: 20071206
  Transmission Date: 20080405
  Serious: Yes (Hospitalization)
  Sender: FDA-Public Use
  Company Number: GXKR2007IN10514

PATIENT
  Age: 29 Year
  Sex: Male

DRUGS (2)
  1. DICLOFENAC [Suspect]
     Dosage: INTRAGLUTEAL
     Route: 030
  2. ANTIVENIN                 (CROTALINE ANTIVENIN, POLYVALENT) [Concomitant]

REACTIONS (7)
  - BLISTER [None]
  - CULTURE WOUND POSITIVE [None]
  - EMBOLIA CUTIS MEDICAMENTOSA [None]
  - ESCHAR [None]
  - PAIN [None]
  - STAPHYLOCOCCAL IDENTIFICATION TEST POSITIVE [None]
  - ULCER [None]
